FAERS Safety Report 4475156-5 (Version None)
Quarter: 2004Q4

REPORT INFORMATION
  Report Type: 
  Country: None (occurrence: None)
  Receive Date: 20041012
  Receipt Date: 20040927
  Transmission Date: 20050328
  Serious: Yes (Hospitalization)
  Sender: FDA-Public Use
  Company Number: 2004060662

PATIENT
  Age: 67 Year
  Sex: Female

DRUGS (2)
  1. CITALOR (ATORVASTATIN) [Suspect]
     Indication: DYSLIPIDAEMIA
     Dosage: 10 MG (10 MG, 1 IN 1 D), ORAL
     Route: 048
     Dates: start: 20010801
  2. DILTIAZEM HYDROCHLORIDE [Concomitant]

REACTIONS (7)
  - ANGINA PECTORIS [None]
  - ANXIETY [None]
  - ARTERIOSPASM CORONARY [None]
  - CARDIAC DISORDER [None]
  - CORONARY ARTERY ATHEROSCLEROSIS [None]
  - CORONARY ARTERY OCCLUSION [None]
  - STRESS SYMPTOMS [None]
